FAERS Safety Report 5605763-5 (Version None)
Quarter: 2008Q1

REPORT INFORMATION
  Report Type: 
  Country: None (occurrence: None)
  Receive Date: 20080129
  Receipt Date: 20080117
  Transmission Date: 20080703
  Serious: Yes (Hospitalization)
  Sender: FDA-Public Use
  Company Number: DE-BAYER-200611139BVD

PATIENT
  Age: 77 Year
  Sex: Male
  Weight: 64 kg

DRUGS (11)
  1. SORAFENIB [Suspect]
     Indication: RENAL CELL CARCINOMA
     Dosage: TOTAL DAILY DOSE: 800 MG  UNIT DOSE: 400 MG
     Route: 048
     Dates: start: 20060719, end: 20060829
  2. NITROPRESS [Concomitant]
     Route: 065
     Dates: start: 20060301
  3. ASPIRIN [Concomitant]
     Route: 065
     Dates: start: 20060301
  4. ISCOVER [Concomitant]
     Route: 065
     Dates: start: 20060301
  5. COVERSUM [Concomitant]
     Route: 065
     Dates: start: 20060301
  6. ATACAND [Concomitant]
     Route: 065
     Dates: start: 20060301
  7. NATRILIX SR [Concomitant]
     Route: 065
     Dates: start: 20060301
  8. NITROLINGUAL [Concomitant]
     Route: 065
     Dates: start: 20060301
  9. MOXONIDIN [Concomitant]
     Route: 065
     Dates: start: 20060301
  10. VITAMIN B-12 [Concomitant]
     Route: 065
     Dates: start: 20060301
  11. AMLODIPINE [Concomitant]
     Route: 065
     Dates: start: 20060717

REACTIONS (1)
  - PARALYSIS [None]
